FAERS Safety Report 4386430-5 (Version None)
Quarter: 2004Q2

REPORT INFORMATION
  Report Type: 
  Country: None (occurrence: None)
  Receive Date: 20040623
  Receipt Date: 20040610
  Transmission Date: 20050107
  Serious: Yes (Hospitalization)
  Sender: FDA-Public Use
  Company Number: FR-JNJFOC-20040503071

PATIENT
  Age: 48 Year
  Sex: Female

DRUGS (9)
  1. RISPERDAL [Suspect]
     Indication: PSYCHOTIC DISORDER
     Dosage: ORAL
     Route: 048
     Dates: end: 20040301
  2. HLDOL (HALOPERIDOL) [Concomitant]
  3. TERCIAN (CYAMEMAZINE) [Concomitant]
  4. LAROXYL (AMITRIPYTLINE HYDROCHLORIDE) [Concomitant]
  5. VALIUM [Concomitant]
  6. OMEPRAZOLE [Concomitant]
  7. LEVOTHYROXINE SODIUM [Concomitant]
  8. GAVISCON [Concomitant]
  9. MOVICOL  (NULYTELY) [Concomitant]

REACTIONS (2)
  - PATHOGEN RESISTANCE [None]
  - PULMONARY RADIATION INJURY [None]
